FAERS Safety Report 6524915-3 (Version None)
Quarter: 2010Q1

REPORT INFORMATION
  Report Type: 
  Country: None (occurrence: None)
  Receive Date: 20100104
  Receipt Date: 20091221
  Transmission Date: 20100710
  Serious: Yes (Hospitalization)
  Sender: FDA-Public Use
  Company Number: SE-PFIZER INC-2009312355

PATIENT
  Age: 76 Year
  Sex: Female

DRUGS (5)
  1. NORVASC [Suspect]
     Indication: HYPERTENSION
     Dosage: 10 MG, UNK
     Route: 048
     Dates: start: 20090801
  2. TENORMIN [Concomitant]
     Dosage: UNK
  3. TROMBYL [Concomitant]
     Dosage: UNK
  4. ETALPHA [Concomitant]
     Dosage: UNK
  5. CALCICHEW [Concomitant]
     Dosage: UNK

REACTIONS (4)
  - JOINT SWELLING [None]
  - OEDEMA PERIPHERAL [None]
  - SWELLING FACE [None]
  - UNEVALUABLE EVENT [None]
